FAERS Safety Report 16119448 (Version 1)
Quarter: 2019Q1

REPORT INFORMATION
  Report Type: Spontaneous
  Country: FR (occurrence: FR)
  Receive Date: 20190326
  Receipt Date: 20190326
  Transmission Date: 20190418
  Serious: Yes (Hospitalization)
  Sender: FDA-Public Use
  Company Number: FR-009507513-1903FRA007923

PATIENT
  Age: 51 Year
  Sex: Female

DRUGS (6)
  1. OXYNORM [Concomitant]
     Active Substance: OXYCODONE HYDROCHLORIDE
  2. OXYCONTIN [Concomitant]
     Active Substance: OXYCODONE HYDROCHLORIDE
     Dosage: FORMULATION: PROLONGED RELEASE FILM COATED TABLET
  3. NOVORAPID [Concomitant]
     Active Substance: INSULIN ASPART
  4. SOLUPRED (PREDNISOLONE SODIUM METAZOATE) [Suspect]
     Active Substance: PREDNISOLONE SODIUM METAZOATE
     Indication: PRODUCT USED FOR UNKNOWN INDICATION
     Dosage: 2.5 MILLIGRAM, QD
     Route: 048
     Dates: end: 20181125
  5. LEVOTHYROX [Concomitant]
     Active Substance: LEVOTHYROXINE
  6. KEYTRUDA [Suspect]
     Active Substance: PEMBROLIZUMAB
     Indication: CHOLANGIOCARCINOMA
     Route: 042
     Dates: start: 20180123

REACTIONS (3)
  - Steroid withdrawal syndrome [Recovering/Resolving]
  - Secondary adrenocortical insufficiency [Recovering/Resolving]
  - Hypopituitarism [Recovering/Resolving]

NARRATIVE: CASE EVENT DATE: 20190203
